FAERS Safety Report 5016757-5 (Version None)
Quarter: 2006Q2

REPORT INFORMATION
  Report Type: 
  Country: None (occurrence: None)
  Receive Date: 20060602
  Receipt Date: 20060526
  Transmission Date: 20061013
  Serious: Yes (Hospitalization)
  Sender: FDA-Public Use
  Company Number: US-MERCK-0605USA04868

PATIENT
  Age: 67 Year
  Sex: Female

DRUGS (9)
  1. DECADRON PHOSPHATE [Suspect]
     Route: 042
  2. DECADRON PHOSPHATE [Suspect]
     Route: 042
  3. PACLITAXEL [Suspect]
     Route: 042
  4. NEULASTA [Suspect]
     Route: 058
  5. DECADRON [Suspect]
     Indication: PREMEDICATION
     Route: 048
  6. DECADRON [Suspect]
     Route: 048
  7. DOXORUBICIN [Suspect]
     Indication: CHEMOTHERAPY
     Route: 065
  8. CYCLOPHOSPHAMIDE [Suspect]
     Indication: CHEMOTHERAPY
     Route: 065
  9. NEUPOGEN [Suspect]
     Route: 058

REACTIONS (2)
  - DYSPNOEA [None]
  - LEUKOCYTOSIS [None]
